FAERS Safety Report 5036220-5 (Version None)
Quarter: 2006Q2

REPORT INFORMATION
  Report Type: 
  Country: None (occurrence: None)
  Receive Date: 20060526
  Receipt Date: 20060217
  Transmission Date: 20061013
  Serious: No
  Sender: FDA-Public Use
  Company Number: 222266

PATIENT
  Age: 47 Year
  Sex: Female
  Weight: 136 kg

DRUGS (8)
  1. RAPTIVA [Suspect]
     Indication: PSORIASIS
     Dosage: 130 MG, 1/WEEK, SUBCUTANEOUS
     Route: 058
     Dates: start: 20051104
  2. DIOVAN [Concomitant]
  3. DILTIAZEM HCL [Concomitant]
  4. DICLOFENAC SODIUM [Concomitant]
  5. DYAZIDE [Concomitant]
  6. NEURONTIN [Concomitant]
  7. PRILOSEC [Concomitant]
  8. LEXAPRO [Concomitant]

REACTIONS (1)
  - LEUKOCYTOSIS [None]
